FAERS Safety Report 8328802-X (Version None)
Quarter: 2012Q2

REPORT INFORMATION
  Report Type: 
  Country: None (occurrence: None)
  Receive Date: 20120502
  Receipt Date: 20120419
  Transmission Date: 20120825
  Serious: Yes (Other)
  Sender: FDA-Public Use
  Company Number: DE-COVIDIEN/TYCO HEALTHCARE/MALLINCKRODT-T201201592

PATIENT
  Age: 70 Year
  Sex: Female

DRUGS (2)
  1. EXALGO [Suspect]
     Dosage: 8 MG, UNK
     Route: 048
  2. EXALGO [Suspect]
     Indication: PAIN
     Dosage: 4 MG, UNK
     Route: 048

REACTIONS (3)
  - INFECTION [None]
  - CHILLS [None]
  - WITHDRAWAL SYNDROME [None]
